FAERS Safety Report 14505173 (Version 3)
Quarter: 2018Q1

REPORT INFORMATION
  Report Type: Spontaneous
  Country: BR (occurrence: BR)
  Receive Date: 20180208
  Receipt Date: 20180220
  Transmission Date: 20180509
  Serious: Yes (Hospitalization, Other)
  Sender: FDA-Public Use
  Company Number: BR-PFIZER INC-2018054428

PATIENT
  Age: 81 Year
  Sex: Female
  Weight: 82 kg

DRUGS (8)
  1. ZOLOFT [Suspect]
     Active Substance: SERTRALINE HYDROCHLORIDE
     Indication: DEPRESSION
     Dosage: 200 MG, DAILY
     Route: 048
  2. FRESUBIN [Concomitant]
     Active Substance: AMINO ACIDS\DEXTROSE\ELECTROLYTES NOS\SOYBEAN OIL\VITAMINS
     Indication: MUSCLE BUILDING THERAPY
     Dosage: 2 OR 3 MEASURES, 2X PER DAY
  3. ENALAPRIL [Concomitant]
     Active Substance: ENALAPRIL
     Indication: HYPERTENSION
     Dosage: 1 TABLET OF 10 MG IN THE MORNING AND 1 AT NIGHT
  4. XARELTO [Concomitant]
     Active Substance: RIVAROXABAN
     Dosage: 20 MG, DAILY
     Dates: start: 201606
  5. ZOLOFT [Suspect]
     Active Substance: SERTRALINE HYDROCHLORIDE
     Dosage: 3 TABLETS OF STRENGTH 100 MG (300 MG), 1X PER DAY
     Route: 048
  6. NOVASOURCE GC [Concomitant]
     Indication: PARENTERAL NUTRITION
     Dosage: 200 ML PER DAY, DIVIDED IN 4 TAKEN DAILY OF 50 ML
     Dates: start: 20160624
  7. METFORMIN [Concomitant]
     Active Substance: METFORMIN HYDROCHLORIDE
     Indication: DIABETES MELLITUS MANAGEMENT
     Dosage: 1 TABLET OF 850 MG IN THE MORNING AND 1 AT NIGHT
  8. SINVASCOR [Concomitant]
     Active Substance: SIMVASTATIN
     Indication: PROPHYLAXIS
     Dosage: 1 TABLET OF 20 MG PER DAY

REACTIONS (7)
  - Cerebrovascular accident [Recovered/Resolved]
  - Pharyngeal disorder [Recovered/Resolved]
  - Asthenia [Recovering/Resolving]
  - Overdose [Unknown]
  - Hemiplegia [Recovering/Resolving]
  - Allergic bronchitis [Unknown]
  - Dysphagia [Recovered/Resolved]

NARRATIVE: CASE EVENT DATE: 2016
